FAERS Safety Report 4788887-4 (Version None)
Quarter: 2005Q4

REPORT INFORMATION
  Report Type: 
  Country: None (occurrence: None)
  Receive Date: 20051004
  Receipt Date: 20050825
  Transmission Date: 20060501
  Serious: Yes (Hospitalization, Other)
  Sender: FDA-Public Use
  Company Number: 2005-01408

PATIENT
  Age: 53 Year
  Sex: Male
  Weight: 61 kg

DRUGS (1)
  1. VELCADE [Suspect]
     Indication: MULTIPLE MYELOMA
     Dosage: 1.30 MG/M2, INTRAVENOUS
     Route: 042
     Dates: start: 20041018, end: 20050519

REACTIONS (10)
  - ANAEMIA [None]
  - BACK PAIN [None]
  - BUNDLE BRANCH BLOCK RIGHT [None]
  - GALLBLADDER POLYP [None]
  - LYMPHOPENIA [None]
  - PLEURAL EFFUSION [None]
  - RENAL CELL CARCINOMA STAGE UNSPECIFIED [None]
  - RENAL CYST [None]
  - SPINAL COMPRESSION FRACTURE [None]
  - THORACIC VERTEBRAL FRACTURE [None]
